FAERS Safety Report 13962133 (Version 1)
Quarter: 2017Q3

REPORT INFORMATION
  Report Type: Spontaneous
  Country: FR (occurrence: FR)
  Receive Date: 20170912
  Receipt Date: 20170912
  Transmission Date: 20171128
  Serious: Yes (Other)
  Sender: FDA-Public Use
  Company Number: FR-MERCK KGAA-2025942

PATIENT
  Age: 55 Year
  Sex: Female

DRUGS (2)
  1. NOVOTHYROX [Suspect]
     Active Substance: LEVOTHYROXINE SODIUM
     Route: 048
     Dates: start: 20170706, end: 20170728
  2. NOVOTHYROX [Suspect]
     Active Substance: LEVOTHYROXINE SODIUM
     Indication: HYPOTHYROIDISM
     Route: 048
     Dates: start: 20170706, end: 20170728

REACTIONS (9)
  - Diarrhoea [Unknown]
  - Sleep disorder [Unknown]
  - Hyperhidrosis [Unknown]
  - Muscular weakness [Unknown]
  - Blood thyroid stimulating hormone decreased [Unknown]
  - Gastrointestinal disorder [Unknown]
  - Tachycardia [Unknown]
  - Fatigue [Unknown]
  - Tremor [Unknown]

NARRATIVE: CASE EVENT DATE: 201707
